FAERS Safety Report 26016461 (Version 1)
Quarter: 2025Q4

REPORT INFORMATION
  Report Type: 
  Country: CN (occurrence: CN)
  Receive Date: 20251110
  Receipt Date: 20251110
  Transmission Date: 20260118
  Serious: Yes (Hospitalization)
  Sender: JIANGSU HANSOH PHARMACEUTICAL GROUP CO., LTD.
  Company Number: CN-Hansoh-20252190020164

PATIENT
  Age: 34 Year
  Sex: Female

DRUGS (3)
  1. AZACITIDINE [Suspect]
     Active Substance: AZACITIDINE
     Indication: Acute myeloid leukaemia
     Dosage: 130MG,QD
     Route: 058
     Dates: start: 20251020, end: 20251021
  2. AZACITIDINE [Suspect]
     Active Substance: AZACITIDINE
     Dosage: 100MG,QD
     Route: 058
     Dates: start: 20251021, end: 20251023
  3. OMACETAXINE MEPESUCCINATE [Suspect]
     Active Substance: OMACETAXINE MEPESUCCINATE
     Indication: Acute myeloid leukaemia
     Dosage: 1.5MG,QD
     Route: 041
     Dates: start: 20251020, end: 20251023

REACTIONS (3)
  - Myelosuppression [Not Recovered/Not Resolved]
  - Electrolyte imbalance [Not Recovered/Not Resolved]
  - Hypokalaemia [Not Recovered/Not Resolved]

NARRATIVE: CASE EVENT DATE: 20251021
